FAERS Safety Report 4612711-3 (Version None)
Quarter: 2005Q1

REPORT INFORMATION
  Report Type: 
  Country: None (occurrence: None)
  Receive Date: 20050316
  Receipt Date: 20050304
  Transmission Date: 20050727
  Serious: Yes (Other)
  Sender: FDA-Public Use
  Company Number: 2005040556

PATIENT
  Age: 66 Year
  Sex: Male
  Weight: 117.9352 kg

DRUGS (12)
  1. DEPO-TESTOSTERONE [Suspect]
     Indication: HORMONE REPLACEMENT THERAPY
     Dosage: 200 MG (200 MG, THREE TIMES A WEEK), INTRAMUSCULAR
     Route: 030
     Dates: start: 20040501
  2. THYROID TAB [Concomitant]
  3. PRASTERONE (PRASTERONE) [Concomitant]
  4. MULVITAMINS (ASCORBIC ACID, ERGOCALCIFEROL, FOLIC ACID, NICOTINAMIDE, [Concomitant]
  5. VITAMIN B-COMPLEX (VITAMIN B-COMPLEX) [Concomitant]
  6. GARLIC (GARLIC) [Concomitant]
  7. PHOSPHATIDYL SERINE (PHOSPHATIDYL SERINE) [Concomitant]
  8. LINOLEIC ACID (LINOLEIC ACID) [Concomitant]
  9. ARGININE (ARGININE) [Concomitant]
  10. AMINO ACIDS (AMINO ACIDS) [Concomitant]
  11. GLUCOSAMINE (GLUCOSAMINE) [Concomitant]
  12. SELENIUM (SELENIUM) [Concomitant]

REACTIONS (4)
  - DRUG INEFFECTIVE [None]
  - LIBIDO DECREASED [None]
  - PHARMACEUTICAL PRODUCT COMPLAINT [None]
  - SURGERY [None]
